FAERS Safety Report 18895421 (Version 2)
Quarter: 2024Q3

REPORT INFORMATION
  Report Type: Spontaneous
  Country: FR (occurrence: FR)
  Receive Date: 20210215
  Receipt Date: 20240828
  Transmission Date: 20241017
  Serious: Yes (Other)
  Sender: MYLAN
  Company Number: FR-TEVA-2020-FR-1860200

PATIENT
  Age: 43 Year
  Sex: Male

DRUGS (3)
  1. OXALIPLATIN [Suspect]
     Active Substance: OXALIPLATIN
     Indication: Adenocarcinoma gastric
     Dosage: UNK UNK, CYCLE
     Route: 042
  2. FLUOROURACIL [Suspect]
     Active Substance: FLUOROURACIL
     Indication: Adenocarcinoma gastric
     Dosage: UNK UNK, CYCLE (5-FU FIRST REDUCED THEN STOPPED)
     Route: 065
  3. DOCETAXEL [Suspect]
     Active Substance: DOCETAXEL\DOCETAXEL ANHYDROUS
     Indication: Adenocarcinoma gastric
     Dosage: UNK UNK, CYCLE
     Route: 042

REACTIONS (7)
  - Myositis [Recovering/Resolving]
  - Pain in extremity [Recovering/Resolving]
  - Oedema [Recovering/Resolving]
  - Inflammation [Unknown]
  - Rhabdomyolysis [Unknown]
  - Palmar-plantar erythrodysaesthesia syndrome [Unknown]
  - Neuropathy peripheral [Unknown]
